FAERS Safety Report 7068583-3 (Version None)
Quarter: 2010Q4

REPORT INFORMATION
  Report Type: 
  Country: None (occurrence: None)
  Receive Date: 20101028
  Receipt Date: 20101015
  Transmission Date: 20110411
  Serious: Yes (Death, Other)
  Sender: FDA-Public Use
  Company Number: US-AMGEN-USASP2010000518

PATIENT

DRUGS (2)
  1. NPLATE [Suspect]
     Indication: MYELODYSPLASTIC SYNDROME
     Dosage: 700 A?G, UNK
     Dates: start: 20100401, end: 20100426
  2. VIDAZA [Concomitant]
     Indication: MYELODYSPLASTIC SYNDROME

REACTIONS (4)
  - ACUTE MYELOID LEUKAEMIA [None]
  - DEATH [None]
  - NEUTROPENIA [None]
  - PNEUMONIA FUNGAL [None]
